FAERS Safety Report 4606567-2 (Version None)
Quarter: 2005Q2

REPORT INFORMATION
  Report Type: 
  Country: None (occurrence: None)
  Receive Date: 20050223
  Receipt Date: 20040728
  Transmission Date: 20051028
  Serious: Yes (Hospitalization)
  Sender: FDA-Public Use
  Company Number: WAES 0407USA02432

PATIENT
  Age: 59 Year
  Sex: Female

DRUGS (9)
  1. ZOCOR [Suspect]
     Indication: HYPERLIPIDAEMIA
     Dosage: 80 MG/DAILY/PO
     Route: 048
     Dates: start: 20040719, end: 20040723
  2. ISORDIL [Concomitant]
  3. LOPID [Concomitant]
  4. NORVASC [Concomitant]
  5. PLAVIX [Concomitant]
  6. PRAVACHOL [Concomitant]
  7. VALIUM [Concomitant]
  8. METOPROLOL TARTRATE [Concomitant]
  9. TRAZODONE HCL [Concomitant]

REACTIONS (2)
  - BLOOD UREA INCREASED [None]
  - RHABDOMYOLYSIS [None]
